FAERS Safety Report 15718656 (Version 1)
Quarter: 2018Q4

REPORT INFORMATION
  Report Type: Spontaneous
  Country: IT (occurrence: IT)
  Receive Date: 20181213
  Receipt Date: 20181213
  Transmission Date: 20190205
  Serious: Yes (Other)
  Sender: FDA-Public Use
  Company Number: IT-GLAXOSMITHKLINE-IT2018224694

PATIENT
  Age: 43 Year
  Sex: Male

DRUGS (3)
  1. SPASMEX (PHLORGLUCINOL) [Suspect]
     Active Substance: PHLOROGLUCINOL
     Indication: PAIN
     Dosage: 1 DF, QD
     Route: 042
     Dates: start: 20181201, end: 20181201
  2. RANITIDINE. [Suspect]
     Active Substance: RANITIDINE
     Indication: ULCER
     Dosage: 1 DF, QD
     Route: 042
     Dates: start: 20181201, end: 20181201
  3. IBIFEN [Concomitant]
     Active Substance: KETOPROFEN
     Indication: PAIN
     Dosage: 1 DF, QD
     Route: 042
     Dates: start: 20181201, end: 20181201

REACTIONS (2)
  - Pruritus [Recovered/Resolved]
  - Rash generalised [Recovered/Resolved]

NARRATIVE: CASE EVENT DATE: 20181201
